FAERS Safety Report 11607481 (Version 1)
Quarter: 2015Q4

REPORT INFORMATION
  Report Type: Report from Study
  Country: US (occurrence: US)
  Receive Date: 20151007
  Receipt Date: 20151007
  Transmission Date: 20160304
  Serious: Yes (Hospitalization, Other)
  Sender: FDA-Public Use
  Company Number: US-CORCEPT THERAPEUTICS INC.-US-2015CRT000412

PATIENT

DRUGS (8)
  1. KORLYM [Suspect]
     Active Substance: MIFEPRISTONE
     Dosage: 4 DF, QD
     Route: 048
     Dates: start: 201501
  2. KORLYM [Suspect]
     Active Substance: MIFEPRISTONE
     Indication: PITUITARY-DEPENDENT CUSHING^S SYNDROME
     Dosage: 2 DF, QD
     Route: 048
     Dates: start: 201310, end: 20141229
  3. SPIRONOLACTONE. [Concomitant]
     Active Substance: SPIRONOLACTONE
     Indication: PRODUCT USED FOR UNKNOWN INDICATION
     Dosage: UNK
  4. ANTIHYPERTENSIVES [Concomitant]
     Active Substance: UNSPECIFIED INGREDIENT
     Indication: BLOOD PRESSURE MEASUREMENT
     Dosage: UNK
  5. THYROID THERAPY [Concomitant]
     Active Substance: UNSPECIFIED INGREDIENT
     Indication: THYROID DISORDER
     Dosage: UNK
  6. KORLYM [Suspect]
     Active Substance: MIFEPRISTONE
     Dosage: 3 DF, QD
     Route: 048
     Dates: start: 20141230, end: 201501
  7. INSULIN [Concomitant]
     Active Substance: INSULIN NOS
     Indication: PRODUCT USED FOR UNKNOWN INDICATION
     Dosage: UNK
  8. ANTIDIAB [Concomitant]
     Indication: DIABETES MELLITUS
     Dosage: UNK

REACTIONS (11)
  - Blood glucose decreased [Not Recovered/Not Resolved]
  - Fungal infection [Recovering/Resolving]
  - Oral mucosal blistering [Recovering/Resolving]
  - Blood potassium decreased [Recovered/Resolved]
  - Blood glucose increased [Recovering/Resolving]
  - Kidney infection [None]
  - Lip blister [Recovering/Resolving]
  - Pneumonia aspiration [Recovered/Resolved]
  - Cystitis [Unknown]
  - Abdominal infection [Unknown]
  - Infection [Not Recovered/Not Resolved]

NARRATIVE: CASE EVENT DATE: 2015
